FAERS Safety Report 10477434 (Version 1)
Quarter: 2014Q3

REPORT INFORMATION
  Report Type: Spontaneous
  Country: CH (occurrence: None)
  Receive Date: 20140923
  Receipt Date: 20140923
  Transmission Date: 20150326
  Serious: Yes (Hospitalization, Congenital Anomaly)
  Sender: FDA-Public Use
  Company Number: 20140608

PATIENT
  Age: 7 Month
  Sex: Male

DRUGS (5)
  1. IMUREL [Suspect]
     Active Substance: AZATHIOPRINE SODIUM
     Route: 064
     Dates: start: 20130329
  2. PREDNISONE (PREDNISONE) [Suspect]
     Active Substance: PREDNISONE
     Indication: FOETAL EXPOSURE DURING PREGNANCY
     Route: 064
     Dates: start: 20130329, end: 20130824
  3. VENOFER [Suspect]
     Active Substance: IRON SUCROSE
     Indication: FOETAL EXPOSURE DURING PREGNANCY
     Route: 064
     Dates: start: 201305
  4. BETNESOL (BETAMETHASONE SODIUM PHOSPHATE) [Suspect]
     Active Substance: BETAMETHASONE SODIUM PHOSPHATE
     Indication: FOETAL EXPOSURE DURING PREGNANCY
     Route: 064
     Dates: start: 20130130
  5. ESOMEPRAZOLE MAGNESIUM (ESOMEPRAZOLE MAGNESIUM) [Suspect]
     Active Substance: ESOMEPRAZOLE MAGNESIUM
     Indication: FOETAL EXPOSURE DURING PREGNANCY
     Route: 064

REACTIONS (7)
  - Neonatal disorder [None]
  - Macrocephaly [None]
  - Congenital hydrocephalus [None]
  - Aqueductal stenosis [None]
  - Foetal exposure during pregnancy [None]
  - Caesarean section [None]
  - Congenital aqueductal stenosis [None]

NARRATIVE: CASE EVENT DATE: 201402
